FAERS Safety Report 6822534-2 (Version None)
Quarter: 2010Q3

REPORT INFORMATION
  Report Type: 
  Country: None (occurrence: None)
  Receive Date: 20100708
  Receipt Date: 20100518
  Transmission Date: 20110219
  Serious: No
  Sender: FDA-Public Use
  Company Number: US-BAYER-201024022NA

PATIENT
  Age: 76 Year
  Sex: Female

DRUGS (1)
  1. MAGNEVIST [Suspect]
     Indication: NUCLEAR MAGNETIC RESONANCE IMAGING BRAIN
     Dates: start: 20100513

REACTIONS (4)
  - ERYTHEMA [None]
  - FEELING HOT [None]
  - MYALGIA [None]
  - OEDEMA PERIPHERAL [None]
